FAERS Safety Report 18467246 (Version 3)
Quarter: 2020Q4

REPORT INFORMATION
  Report Type: Spontaneous
  Country: HR (occurrence: HR)
  Receive Date: 20201105
  Receipt Date: 20201125
  Transmission Date: 20210114
  Serious: Yes (Hospitalization)
  Sender: FDA-Public Use
  Company Number: HR-ASTRAZENECA-2020SF40901

PATIENT
  Sex: Male
  Weight: 112 kg

DRUGS (37)
  1. ENTRESTO [Suspect]
     Active Substance: SACUBITRIL\VALSARTAN
     Dosage: 100 MG, BID (49/51 MG)
     Route: 065
     Dates: start: 2018
  2. ENTRESTO [Suspect]
     Active Substance: SACUBITRIL\VALSARTAN
     Dosage: 200 MG, BID (97/103 MG)
     Route: 065
     Dates: start: 2020
  3. ENTRESTO [Suspect]
     Active Substance: SACUBITRIL\VALSARTAN
     Dosage: 200 MG, BID (97/103 MG)
     Route: 065
     Dates: start: 202009
  4. ROSUVASTATIN. [Suspect]
     Active Substance: ROSUVASTATIN
     Dosage: 1.0DF UNKNOWN
     Route: 065
     Dates: start: 2020
  5. BISOPROLOL [Suspect]
     Active Substance: BISOPROLOL
     Dosage: 5 MG, BID (2015-2016)
     Route: 065
     Dates: start: 2015, end: 2016
  6. BISOPROLOL [Suspect]
     Active Substance: BISOPROLOL
     Route: 065
     Dates: start: 2016
  7. FUROSEMIDE. [Suspect]
     Active Substance: FUROSEMIDE
     Route: 065
     Dates: start: 2016
  8. FUROSEMIDE. [Suspect]
     Active Substance: FUROSEMIDE
     Dosage: 40.0MG AS REQUIRED
     Route: 065
     Dates: start: 2020
  9. ROSUVASTATIN. [Suspect]
     Active Substance: ROSUVASTATIN
     Dosage: 1.0DF UNKNOWN
     Route: 065
     Dates: start: 2019
  10. ROSUVASTATIN. [Suspect]
     Active Substance: ROSUVASTATIN
     Dosage: 1.0DF UNKNOWN
     Route: 065
     Dates: start: 202009
  11. ELIQUIS [Suspect]
     Active Substance: APIXABAN
     Route: 065
     Dates: start: 2020
  12. FUROSEMIDE. [Suspect]
     Active Substance: FUROSEMIDE
     Dosage: 40 MG, QD (2015-2016)
     Route: 065
     Dates: start: 2015, end: 2016
  13. AMIODARONE [Suspect]
     Active Substance: AMIODARONE
     Route: 065
     Dates: start: 2016
  14. ELIQUIS [Suspect]
     Active Substance: APIXABAN
     Route: 065
     Dates: start: 2018
  15. ELIQUIS [Suspect]
     Active Substance: APIXABAN
     Route: 065
     Dates: start: 2019
  16. BISOPROLOL [Suspect]
     Active Substance: BISOPROLOL
     Route: 065
     Dates: start: 2020
  17. BISOPROLOL [Suspect]
     Active Substance: BISOPROLOL
     Route: 065
     Dates: start: 202009
  18. EPLERENONE. [Suspect]
     Active Substance: EPLERENONE
     Dosage: 25.0MG UNKNOWN
     Route: 065
     Dates: start: 2016
  19. EPLERENONE. [Suspect]
     Active Substance: EPLERENONE
     Dosage: 50.0MG UNKNOWN
     Route: 065
     Dates: start: 2018
  20. FUROSEMIDE. [Suspect]
     Active Substance: FUROSEMIDE
     Dosage: 500 MG, BID (QUARTER OF A TABLET)
     Route: 065
     Dates: start: 2018
  21. ENTRESTO [Suspect]
     Active Substance: SACUBITRIL\VALSARTAN
     Dosage: 200 MG, BID (97/103 MG)
     Route: 065
     Dates: start: 2019
  22. ROSUVASTATIN. [Suspect]
     Active Substance: ROSUVASTATIN
     Dosage: 1.0DF UNKNOWN
     Route: 065
     Dates: start: 2018
  23. AMIODARONE [Suspect]
     Active Substance: AMIODARONE
     Dosage: 1.0DF UNKNOWN
     Route: 065
     Dates: start: 2019
  24. EPLERENONE. [Suspect]
     Active Substance: EPLERENONE
     Dosage: 25 MILLIGRAM, (2015-2016)
     Route: 065
     Dates: start: 2015, end: 2016
  25. ROSUVASTATIN. [Suspect]
     Active Substance: ROSUVASTATIN
     Dosage: 1 DF, QD (IN THE EVENING) (2015-2016)
     Route: 065
     Dates: start: 2015, end: 2016
  26. ELIQUIS [Suspect]
     Active Substance: APIXABAN
     Route: 065
     Dates: start: 2016
  27. EPLERENONE. [Suspect]
     Active Substance: EPLERENONE
     Dosage: 50.0MG UNKNOWN
     Route: 065
     Dates: start: 202009
  28. FUROSEMIDE. [Suspect]
     Active Substance: FUROSEMIDE
     Dosage: 40.0MG AS REQUIRED
     Route: 065
     Dates: start: 202009
  29. ROSUVASTATIN. [Suspect]
     Active Substance: ROSUVASTATIN
     Route: 065
     Dates: start: 2016
  30. AMIODARONE [Suspect]
     Active Substance: AMIODARONE
     Dosage: 1.0DF UNKNOWN
     Route: 065
     Dates: start: 2018
  31. AMIODARONE [Suspect]
     Active Substance: AMIODARONE
     Dosage: 1.0DF UNKNOWN
     Route: 065
     Dates: start: 2020
  32. ELIQUIS [Suspect]
     Active Substance: APIXABAN
     Route: 065
     Dates: start: 202009
  33. EPLERENONE. [Suspect]
     Active Substance: EPLERENONE
     Dosage: 50.0MG UNKNOWN
     Route: 065
     Dates: start: 2019
  34. EPLERENONE. [Suspect]
     Active Substance: EPLERENONE
     Dosage: 50.0MG UNKNOWN
     Route: 065
     Dates: start: 2020
  35. AMIODARONE [Suspect]
     Active Substance: AMIODARONE
     Dosage: 1.0DF UNKNOWN
     Route: 065
     Dates: start: 202009
  36. BISOPROLOL [Suspect]
     Active Substance: BISOPROLOL
     Route: 065
     Dates: start: 2019
  37. FUROSEMIDE. [Suspect]
     Active Substance: FUROSEMIDE
     Route: 065
     Dates: start: 2019

REACTIONS (4)
  - N-terminal prohormone brain natriuretic peptide increased [Unknown]
  - Chest discomfort [Unknown]
  - Weight decreased [Unknown]
  - Atrial tachycardia [Recovered/Resolved]

NARRATIVE: CASE EVENT DATE: 2019
